FAERS Safety Report 7998442-0 (Version None)
Quarter: 2011Q4

REPORT INFORMATION
  Report Type: 
  Country: None (occurrence: None)
  Receive Date: 20111221
  Receipt Date: 20111027
  Transmission Date: 20120403
  Serious: No
  Sender: FDA-Public Use
  Company Number: US-GLAXOSMITHKLINE-A0950767A

PATIENT
  Age: 78 Year
  Sex: Female

DRUGS (3)
  1. LOVAZA [Suspect]
     Indication: BLOOD CHOLESTEROL INCREASED
     Dosage: 2CAP PER DAY
     Route: 048
     Dates: start: 20110801
  2. BLOOD PRESSURE MEDICATION [Concomitant]
  3. FISH OIL [Concomitant]

REACTIONS (1)
  - DYSPEPSIA [None]
